FAERS Safety Report 15791781 (Version 10)
Quarter: 2019Q3

REPORT INFORMATION
  Report Type: Report from Study
  Country: US (occurrence: US)
  Receive Date: 20190105
  Receipt Date: 20190809
  Transmission Date: 20191004
  Serious: Yes (Other)
  Sender: FDA-Public Use
  Company Number: US-TEVA-2019-US-995231

PATIENT
  Sex: Male

DRUGS (1)
  1. CLOZAPINE TEVA [Suspect]
     Active Substance: CLOZAPINE
     Route: 048

REACTIONS (1)
  - Granulocytopenia [Unknown]
